FAERS Safety Report 8473473-5 (Version None)
Quarter: 2012Q2

REPORT INFORMATION
  Report Type: 
  Country: None (occurrence: None)
  Receive Date: 20120625
  Receipt Date: 20120625
  Transmission Date: 20120825
  Serious: Yes (Life-Threatening, Hospitalization)
  Sender: FDA-Public Use
  Company Number: None

PATIENT
  Age: 65 Year
  Sex: Female

DRUGS (2)
  1. CYCLOPHOSPHAMIDE [Suspect]
     Indication: IDIOPATHIC PULMONARY FIBROSIS
     Dosage: 1 TABLET TWICE DAILY PO
     Route: 048
  2. DAPSONE [Suspect]
     Indication: RHEUMATOID ARTHRITIS
     Dosage: 1 TABLET DAILY PO
     Route: 048

REACTIONS (4)
  - MALAISE [None]
  - PANCYTOPENIA [None]
  - ASTHENIA [None]
  - FATIGUE [None]
